FAERS Safety Report 4395540-8 (Version None)
Quarter: 2004Q3

REPORT INFORMATION
  Report Type: 
  Country: None (occurrence: None)
  Receive Date: 20040709
  Receipt Date: 20040628
  Transmission Date: 20050211
  Serious: Yes (Other)
  Sender: FDA-Public Use
  Company Number: HQWYE764329JUN04

PATIENT
  Sex: Female
  Weight: 92.16 kg

DRUGS (8)
  1. INDERAL [Suspect]
     Indication: MIGRAINE
     Dosage: ORAL
     Route: 048
     Dates: start: 20020101
  2. INDERAL LA [Suspect]
     Indication: HYPERTENSION
     Dates: start: 19920101, end: 20020101
  3. PRILOSEC [Concomitant]
  4. PREMARIN [Concomitant]
  5. CELEBREX [Concomitant]
  6. ATIVAN [Concomitant]
  7. AMBIEN [Concomitant]
  8. ATENOLOL [Concomitant]

REACTIONS (3)
  - CONDITION AGGRAVATED [None]
  - HEADACHE [None]
  - HYPERTENSION [None]
